FAERS Safety Report 8860188 (Version 2)
Quarter: 2013Q1

REPORT INFORMATION
  Report Type: Spontaneous
  Country: US (occurrence: US)
  Receive Date: 20121025
  Receipt Date: 20130304
  Transmission Date: 20140127
  Serious: Yes (Other)
  Sender: FDA-Public Use
  Company Number: US-PFIZER INC-2012264309

PATIENT
  Sex: Female

DRUGS (4)
  1. LEVOXYL [Suspect]
     Indication: THYROID DISORDER
     Dosage: 100 UG, 1X/DAY
     Dates: start: 200007
  2. LEVOXYL [Suspect]
     Dosage: 100 UG, SIX DAYS A WEEK
  3. SYNTHROID [Suspect]
     Indication: THYROID DISORDER
     Dosage: 0.88 MG, WEEKLY
  4. AMLODIPINE [Concomitant]
     Indication: BLOOD PRESSURE ABNORMAL
     Dosage: 2.5 MG, 1X/DAY

REACTIONS (10)
  - Product quality issue [Unknown]
  - Hyperthyroidism [Unknown]
  - Malaise [Unknown]
  - Anxiety [Not Recovered/Not Resolved]
  - Nervousness [Not Recovered/Not Resolved]
  - Irritability [Unknown]
  - Abdominal discomfort [Unknown]
  - Tremor [Unknown]
  - Insomnia [Unknown]
  - Tri-iodothyronine decreased [Unknown]
